FAERS Safety Report 8955062 (Version 1)
Quarter: 2012Q4

REPORT INFORMATION
  Report Type: 
  Country: GB (occurrence: GB)
  Receive Date: 20121210
  Receipt Date: 20121210
  Transmission Date: 20130627
  Serious: Yes (Other)
  Sender: FDA-Public Use
  Company Number: GB-JNJFOC-20121202893

PATIENT
  Age: 74 Year
  Sex: Female
  Weight: 127 kg

DRUGS (16)
  1. XARELTO [Suspect]
     Indication: CEREBROVASCULAR ACCIDENT PROPHYLAXIS
     Route: 048
     Dates: start: 20120921, end: 20121018
  2. XARELTO [Suspect]
     Indication: ATRIAL FIBRILLATION
     Route: 048
     Dates: start: 20120921, end: 20121018
  3. ASPIRIN [Concomitant]
     Indication: ACUTE MYOCARDIAL INFARCTION
     Route: 065
  4. PARACETAMOL [Concomitant]
     Route: 065
  5. CODEINE [Concomitant]
     Route: 065
  6. FUROSEMIDE [Concomitant]
     Route: 065
  7. TIOTROPIUM [Concomitant]
  8. NICORANDIL [Concomitant]
     Route: 065
  9. QUININE [Concomitant]
     Route: 065
  10. SALBUTAMOL [Concomitant]
     Route: 065
  11. SERETIDE [Concomitant]
     Route: 065
  12. SITAGLIPTIN [Concomitant]
     Route: 065
  13. CALFOVIT D3 [Concomitant]
     Route: 065
  14. BISOPROLOL [Concomitant]
     Route: 065
  15. ATORVASTATIN [Concomitant]
     Route: 065
  16. ISOSORBIDE [Concomitant]
     Route: 065

REACTIONS (4)
  - Haemorrhage [Recovering/Resolving]
  - Faeces discoloured [Unknown]
  - Epistaxis [Unknown]
  - Haemoglobin decreased [Unknown]
